FAERS Safety Report 20970104 (Version 4)
Quarter: 2023Q2

REPORT INFORMATION
  Report Type: Spontaneous
  Country: US (occurrence: US)
  Receive Date: 20220616
  Receipt Date: 20230511
  Transmission Date: 20230721
  Serious: No
  Sender: FDA-Public Use
  Company Number: US-SA-SAC20220606000206

PATIENT
  Age: 53 Year
  Sex: Female
  Weight: 62 kg

DRUGS (14)
  1. LUMIZYME [Suspect]
     Active Substance: ALGLUCOSIDASE ALFA
     Indication: Glycogen storage disease type II
     Dosage: 125 MG, QOW
     Route: 042
     Dates: start: 20180323
  2. VITAMIN D3 [Concomitant]
     Active Substance: CHOLECALCIFEROL
  3. DIPHENHYDRAMINE [Concomitant]
     Active Substance: DIPHENHYDRAMINE
  4. SODIUM CHLORIDE [Concomitant]
     Active Substance: SODIUM CHLORIDE
  5. STERILE WATER [Concomitant]
     Active Substance: WATER
  6. EPINEPHRINE [Concomitant]
     Active Substance: EPINEPHRINE
  7. ZYRTEC [Concomitant]
     Active Substance: CETIRIZINE HYDROCHLORIDE
  8. ASPIRIN [Concomitant]
     Active Substance: ASPIRIN
  9. TRAMADOL HCL [Concomitant]
     Active Substance: TRAMADOL HYDROCHLORIDE
  10. DIPHENHYDRAMINE HYDROCHLORIDE [Concomitant]
     Active Substance: DIPHENHYDRAMINE HYDROCHLORIDE
  11. SODIUM CHLORIDE [Concomitant]
     Active Substance: SODIUM CHLORIDE
  12. OXYGEN [Concomitant]
     Active Substance: OXYGEN
  13. FLONASE ALLERGY RELIEF [Concomitant]
     Active Substance: FLUTICASONE PROPIONATE
  14. ALBUTEROL SULFATE [Concomitant]
     Active Substance: ALBUTEROL SULFATE

REACTIONS (6)
  - Feeling abnormal [Unknown]
  - Asthenia [Unknown]
  - Inappropriate schedule of product administration [Unknown]
  - Muscle disorder [Unknown]
  - Headache [Unknown]
  - Muscle twitching [Unknown]
